FAERS Safety Report 5581913-4 (Version None)
Quarter: 2008Q1

REPORT INFORMATION
  Report Type: 
  Country: None (occurrence: None)
  Receive Date: 20080104
  Receipt Date: 20071221
  Transmission Date: 20080703
  Serious: Yes (Other)
  Sender: FDA-Public Use
  Company Number: US-RANBAXY-2007US-11309

PATIENT

DRUGS (1)
  1. ISOTRETINOIN [Suspect]
     Indication: DRUG USE FOR UNKNOWN INDICATION
     Dosage: 20 MG, UNK
     Route: 048
     Dates: end: 20070901

REACTIONS (6)
  - ACNE [None]
  - DRUG INEFFECTIVE [None]
  - DRY EYE [None]
  - MIGRAINE [None]
  - OVARIAN CYST [None]
  - SINUSITIS [None]
